FAERS Safety Report 7645153 (Version 8)
Quarter: 2025Q2

REPORT INFORMATION
  Report Type: Spontaneous
  Country: CA (occurrence: CA)
  Receive Date: 20090423
  Receipt Date: 20250423
  Transmission Date: 20250717
  Serious: Yes (Hospitalization, Other)
  Sender: ALEXION PHARMACEUTICALS
  Company Number: 2009UW09452

PATIENT
  Age: 61 Year
  Weight: 97 kg

DRUGS (5)
  1. ESOMEPRAZOLE [Suspect]
     Active Substance: ESOMEPRAZOLE
     Indication: Prophylaxis against gastrointestinal ulcer
     Dosage: 40 MILLIGRAM, QD (1X/DAY)
  2. ESOMEPRAZOLE [Suspect]
     Active Substance: ESOMEPRAZOLE
     Dosage: 40 MILLIGRAM, QD (1X/DAY)
  3. ADVIL [Suspect]
     Active Substance: IBUPROFEN
     Indication: Osteoarthritis
     Dosage: UNK, TID (3X/DAY)
  4. ADVIL [Suspect]
     Active Substance: IBUPROFEN
  5. ASPIRIN [Concomitant]
     Active Substance: ASPIRIN
     Indication: Product used for unknown indication

REACTIONS (1)
  - Polyarthritis [Recovered/Resolved]
